FAERS Safety Report 21993166 (Version 1)
Quarter: 2023Q1

REPORT INFORMATION
  Report Type: Spontaneous
  Country: HK (occurrence: HK)
  Receive Date: 20230215
  Receipt Date: 20230215
  Transmission Date: 20230417
  Serious: Yes (Hospitalization, Other)
  Sender: FDA-Public Use
  Company Number: HK-ENDO PHARMACEUTICALS INC-2023-000826

PATIENT
  Age: 31 Year
  Sex: Female

DRUGS (3)
  1. PROPYLTHIOURACIL [Suspect]
     Active Substance: PROPYLTHIOURACIL
     Indication: Basedow^s disease
     Dosage: 150 MG, TID
     Route: 065
     Dates: start: 1989, end: 198906
  2. CARBIMAZOLE [Concomitant]
     Active Substance: CARBIMAZOLE
     Indication: Basedow^s disease
     Dosage: 10 MG, TID
     Route: 065
     Dates: start: 1989, end: 1989
  3. PROPRANOLOL [Concomitant]
     Active Substance: PROPRANOLOL HYDROCHLORIDE
     Indication: Basedow^s disease
     Dosage: 10 MG, TID
     Route: 065
     Dates: start: 1989

REACTIONS (2)
  - Deafness neurosensory [Recovered/Resolved]
  - Drug hypersensitivity [Recovered/Resolved]

NARRATIVE: CASE EVENT DATE: 19890101
